FAERS Safety Report 8743401 (Version 2)
Quarter: 2012Q4

REPORT INFORMATION
  Report Type: 
  Country: MX (occurrence: MX)
  Receive Date: 20120824
  Receipt Date: 20121219
  Transmission Date: 20130627
  Serious: Yes (Hospitalization)
  Sender: FDA-Public Use
  Company Number: MX-ELI_LILLY_AND_COMPANY-MX201208004159

PATIENT
  Age: 41 Year
  Sex: Female
  Weight: 90 kg

DRUGS (3)
  1. HUMULIN NPH [Suspect]
     Indication: DIABETES MELLITUS
     Dosage: 50 u, unknown
     Route: 058
     Dates: start: 2008
  2. HUMULIN NPH [Suspect]
     Dosage: 20 u, each morning
  3. HUMULIN REGULAR [Suspect]
     Dosage: UNK, unknown

REACTIONS (2)
  - Obesity [Unknown]
  - Expired drug administered [Unknown]
